FAERS Safety Report 12831050 (Version 2)
Quarter: 2016Q4

REPORT INFORMATION
  Report Type: Spontaneous
  Country: RU (occurrence: RU)
  Receive Date: 20161007
  Receipt Date: 20161013
  Transmission Date: 20170207
  Serious: Yes (Other)
  Sender: FDA-Public Use
  Company Number: RU-ASTRAZENECA-2016SF04128

PATIENT
  Age: 67 Year
  Sex: Male

DRUGS (7)
  1. XARELTO [Concomitant]
     Active Substance: RIVAROXABAN
  2. BETALOC [Concomitant]
     Active Substance: METOPROLOL TARTRATE
  3. DIABETON MB [Concomitant]
     Active Substance: GLICLAZIDE
  4. TORVACARD [Concomitant]
     Active Substance: ATORVASTATIN CALCIUM
  5. PRESTARIUM [Concomitant]
     Active Substance: PERINDOPRIL
  6. GLUCOPHAGE [Concomitant]
     Active Substance: METFORMIN HYDROCHLORIDE
  7. FORXIGA [Suspect]
     Active Substance: DAPAGLIFLOZIN
     Indication: TYPE 2 DIABETES MELLITUS
     Route: 048
     Dates: start: 201605, end: 20160926

REACTIONS (2)
  - Loss of consciousness [Recovered/Resolved]
  - Abdominal discomfort [Recovered/Resolved]

NARRATIVE: CASE EVENT DATE: 201608
